FAERS Safety Report 5666482-2 (Version None)
Quarter: 2008Q1

REPORT INFORMATION
  Report Type: 
  Country: None (occurrence: None)
  Receive Date: 20080314
  Receipt Date: 20071217
  Transmission Date: 20080703
  Serious: No
  Sender: FDA-Public Use
  Company Number: US-ABBOTT-07P-163-0430815-00

PATIENT
  Sex: Female
  Weight: 150 kg

DRUGS (5)
  1. HUMIRA [Suspect]
     Indication: ANKYLOSING SPONDYLITIS
     Route: 058
     Dates: start: 20071210
  2. PREGABALIN [Concomitant]
     Indication: NEUROPATHY PERIPHERAL
     Route: 048
     Dates: start: 20070601
  3. PREGABALIN [Concomitant]
     Indication: FIBROMYALGIA
  4. GABAPENTIN [Concomitant]
     Indication: NEUROPATHY PERIPHERAL
     Route: 048
     Dates: start: 20070701
  5. GABAPENTIN [Concomitant]
     Indication: FIBROMYALGIA

REACTIONS (1)
  - UNDERDOSE [None]
